FAERS Safety Report 18414662 (Version 2)
Quarter: 2020Q4

REPORT INFORMATION
  Report Type: Spontaneous
  Country: GB (occurrence: GB)
  Receive Date: 20201022
  Receipt Date: 20201201
  Transmission Date: 20210114
  Serious: Yes (Other)
  Sender: FDA-Public Use
  Company Number: GB-DRREDDYS-USA/UKI/20/0128310

PATIENT
  Age: 17 Year
  Sex: Female

DRUGS (8)
  1. METHYSERGIDE [Suspect]
     Active Substance: METHYSERGIDE
     Indication: HEADACHE
     Route: 065
  2. TOPIRAMATE. [Suspect]
     Active Substance: TOPIRAMATE
     Indication: HEADACHE
     Route: 065
  3. DIHYDROERGOTAMINE [Suspect]
     Active Substance: DIHYDROERGOTAMINE
     Indication: HEADACHE
     Route: 042
  4. GABAPENTIN. [Suspect]
     Active Substance: GABAPENTIN
     Indication: HEADACHE
     Route: 065
  5. PREGABALIN. [Suspect]
     Active Substance: PREGABALIN
     Indication: HEADACHE
     Route: 065
  6. SODIUM VALPROATE [Suspect]
     Active Substance: VALPROATE SODIUM
     Indication: HEADACHE
     Route: 065
  7. BOTULINUM TOXIN A [Suspect]
     Active Substance: BOTULINUM TOXIN TYPE A
     Indication: HEADACHE
     Route: 065
  8. MEMANTINE HYDROCHLORIDE. [Suspect]
     Active Substance: MEMANTINE HYDROCHLORIDE
     Indication: HEADACHE
     Route: 065

REACTIONS (3)
  - Superior mesenteric artery syndrome [Unknown]
  - Renal vein compression [Unknown]
  - Drug ineffective [Unknown]

NARRATIVE: CASE EVENT DATE: 201708
